FAERS Safety Report 6821406-7 (Version None)
Quarter: 2010Q3

REPORT INFORMATION
  Report Type: 
  Country: None (occurrence: None)
  Receive Date: 20100707
  Receipt Date: 20081025
  Transmission Date: 20110219
  Serious: No
  Sender: FDA-Public Use
  Company Number: US-PFIZER INC-2008065733

PATIENT
  Sex: Female

DRUGS (10)
  1. ZOLOFT [Suspect]
     Indication: GENERALISED ANXIETY DISORDER
     Route: 048
  2. ZOLOFT [Suspect]
     Indication: OBSESSIVE-COMPULSIVE DISORDER
  3. SERTRALINE HCL [Suspect]
  4. RETIN-A [Concomitant]
  5. CYMBALTA [Concomitant]
  6. GARLIC [Concomitant]
  7. MULTI-VITAMINS [Concomitant]
  8. FISH OIL [Concomitant]
  9. ACETYLSALICYLIC ACID [Concomitant]
  10. VITAMIN B COMPLEX CAP [Concomitant]

REACTIONS (11)
  - ABDOMINAL DISTENSION [None]
  - ACNE [None]
  - APATHY [None]
  - DECREASED APPETITE [None]
  - FIBROMYALGIA [None]
  - FOOD AVERSION [None]
  - MALAISE [None]
  - NAUSEA [None]
  - PRODUCT QUALITY ISSUE [None]
  - RETCHING [None]
  - WEIGHT DECREASED [None]
